FAERS Safety Report 18753675 (Version 1)
Quarter: 2021Q1

REPORT INFORMATION
  Report Type: Spontaneous
  Country: TR (occurrence: TR)
  Receive Date: 20210118
  Receipt Date: 20210118
  Transmission Date: 20210419
  Serious: No
  Sender: FDA-Public Use
  Company Number: TR-LUPIN PHARMACEUTICALS INC.-2021-00178

PATIENT
  Age: 17 Year
  Sex: Female

DRUGS (3)
  1. CLOBETASOL [Suspect]
     Active Substance: CLOBETASOL
     Indication: SUBCORNEAL PUSTULAR DERMATOSIS
     Dosage: UNK
     Route: 061
  2. MUPIROCIN. [Suspect]
     Active Substance: MUPIROCIN
     Indication: SUBCORNEAL PUSTULAR DERMATOSIS
     Dosage: UNK
     Route: 061
  3. TACROLIMUS. [Concomitant]
     Active Substance: TACROLIMUS
     Indication: SUBCORNEAL PUSTULAR DERMATOSIS
     Dosage: UNK
     Route: 061

REACTIONS (1)
  - Drug ineffective [Unknown]
